FAERS Safety Report 9919254 (Version 1)
Quarter: 2014Q1

REPORT INFORMATION
  Report Type: Report from Study
  Country: CA (occurrence: CA)
  Receive Date: 20140224
  Receipt Date: 20140224
  Transmission Date: 20141002
  Serious: Yes (Other)
  Sender: FDA-Public Use
  Company Number: CA-JNJFOC-20140213641

PATIENT
  Age: 28 Year
  Sex: Male
  Weight: 97.7 kg

DRUGS (3)
  1. REMICADE [Suspect]
     Indication: CROHN^S DISEASE
     Route: 042
     Dates: start: 20100720
  2. BENADRYL [Concomitant]
     Indication: PREMEDICATION
     Route: 048
  3. PREDNISONE [Concomitant]
     Indication: PREMEDICATION
     Route: 048

REACTIONS (1)
  - Nasal septum deviation [Unknown]
